FAERS Safety Report 24689672 (Version 1)
Quarter: 2024Q4

REPORT INFORMATION
  Report Type: Spontaneous
  Country: IT (occurrence: IT)
  Receive Date: 20241203
  Receipt Date: 20241203
  Transmission Date: 20250114
  Serious: Yes (Other)
  Sender: RISING PHARMACEUTICALS
  Company Number: IT-RISINGPHARMA-IT-2024RISLIT00473

PATIENT
  Age: 27 Year
  Sex: Male

DRUGS (1)
  1. IBUPROFEN [Suspect]
     Active Substance: IBUPROFEN
     Indication: Back pain
     Route: 065

REACTIONS (2)
  - Neurotoxicity [Recovered/Resolved]
  - Diplopia [Recovered/Resolved]
